FAERS Safety Report 8596950-5 (Version None)
Quarter: 2012Q3

REPORT INFORMATION
  Report Type: 
  Country: None (occurrence: None)
  Receive Date: 20120815
  Receipt Date: 20120807
  Transmission Date: 20120928
  Serious: Yes (Other)
  Sender: FDA-Public Use
  Company Number: PR-ABBOTT-12P-131-0945336-00

PATIENT
  Sex: Female
  Weight: 69.916 kg

DRUGS (1)
  1. HUMIRA [Suspect]
     Indication: RHEUMATOID ARTHRITIS
     Route: 058
     Dates: start: 20120530

REACTIONS (6)
  - INJECTION SITE CELLULITIS [None]
  - PAIN [None]
  - AXILLARY MASS [None]
  - NASOPHARYNGITIS [None]
  - DRUG INEFFECTIVE [None]
  - JOINT SWELLING [None]
